FAERS Safety Report 5375649-2 (Version None)
Quarter: 2007Q2

REPORT INFORMATION
  Report Type: 
  Country: None (occurrence: None)
  Receive Date: 20070628
  Receipt Date: 20070619
  Transmission Date: 20071010
  Serious: Yes (Hospitalization)
  Sender: FDA-Public Use
  Company Number: 2007BI010138

PATIENT
  Age: 37 Year
  Sex: Male

DRUGS (8)
  1. NATALIZUMAB [Suspect]
     Indication: MULTIPLE SCLEROSIS
     Dosage: 300 MG;QM; IV
     Route: 042
     Dates: start: 20070104, end: 20070401
  2. CYMBALTA [Concomitant]
  3. AMBIEN [Concomitant]
  4. NEURONTIN [Concomitant]
  5. BACLOFEN [Concomitant]
  6. LOTREL [Concomitant]
  7. LEXAPRO [Concomitant]
  8. DETROL [Concomitant]

REACTIONS (3)
  - CHEST PAIN [None]
  - FALL [None]
  - URINARY TRACT INFECTION [None]
